FAERS Safety Report 14421130 (Version 1)
Quarter: 2018Q1

REPORT INFORMATION
  Report Type: Not Available
  Country: US (occurrence: US)
  Receive Date: 20180122
  Receipt Date: 20180122
  Transmission Date: 20180509
  Serious: No
  Sender: FDA-Public Use
  Company Number: US-NEUROCRINE BIOSCIENCES INC.-2018NBI00011

PATIENT
  Age: 72 Year
  Sex: Female

DRUGS (3)
  1. INGREZZA [Suspect]
     Active Substance: VALBENAZINE
     Indication: PRODUCT USED FOR UNKNOWN INDICATION
     Route: 048
     Dates: start: 20171208, end: 201712
  2. INGREZZA [Suspect]
     Active Substance: VALBENAZINE
     Route: 048
  3. LASIX [Suspect]
     Active Substance: FUROSEMIDE
     Indication: PRODUCT USED FOR UNKNOWN INDICATION

REACTIONS (4)
  - Urinary retention [Unknown]
  - Hallucination [Unknown]
  - Oedema peripheral [Unknown]
  - Fatigue [Unknown]

NARRATIVE: CASE EVENT DATE: 20171213
